FAERS Safety Report 7464625-1 (Version None)
Quarter: 2011Q2

REPORT INFORMATION
  Report Type: 
  Country: None (occurrence: None)
  Receive Date: 20110509
  Receipt Date: 20100223
  Transmission Date: 20111010
  Serious: No
  Sender: FDA-Public Use
  Company Number: US-BAYER-201015784NA

PATIENT
  Age: 20 Year
  Sex: Female

DRUGS (2)
  1. MIRENA [Suspect]
     Indication: CONTRACEPTION
     Dosage: 20 ?G/D, CONT
  2. MIRENA [Suspect]
     Indication: MENORRHAGIA

REACTIONS (4)
  - AMENORRHOEA [None]
  - WEIGHT INCREASED [None]
  - MEDICAL DEVICE COMPLICATION [None]
  - FEELING ABNORMAL [None]
